FAERS Safety Report 9689409 (Version 1)
Quarter: 2013Q4

REPORT INFORMATION
  Report Type: Spontaneous
  Country: US (occurrence: US)
  Receive Date: 20131114
  Receipt Date: 20131114
  Transmission Date: 20140711
  Serious: Yes (Hospitalization)
  Sender: FDA-Public Use
  Company Number: PHHY2013US128536

PATIENT
  Age: 32 Year
  Sex: Female

DRUGS (3)
  1. MIRTAZAPINE [Suspect]
     Dosage: 15 MG, AT BEDTIME
  2. CARBAMAZEPINE [Concomitant]
  3. CITALOPRAM [Concomitant]

REACTIONS (8)
  - Hyperglycaemia [Unknown]
  - Sluggishness [Unknown]
  - Vision blurred [Unknown]
  - Weight increased [Unknown]
  - Headache [Unknown]
  - Increased appetite [Unknown]
  - Fatigue [Unknown]
  - Nausea [Unknown]
